FAERS Safety Report 22179705 (Version 1)
Quarter: 2023Q2

REPORT INFORMATION
  Report Type: Spontaneous
  Country: JP (occurrence: JP)
  Receive Date: 20230406
  Receipt Date: 20230406
  Transmission Date: 20230722
  Serious: Yes (Hospitalization, Other)
  Sender: FDA-Public Use
  Company Number: JP-SA-SAC20230328000011

PATIENT
  Age: 64 Year
  Sex: Female

DRUGS (3)
  1. LANSOPRAZOLE [Suspect]
     Active Substance: LANSOPRAZOLE
     Indication: Product used for unknown indication
     Route: 048
  2. LEVOFLOXACIN [Suspect]
     Active Substance: LEVOFLOXACIN
     Indication: Injection site infection
     Dosage: 125 MILLIGRAM DAILY; QOD
     Route: 065
  3. LEVOFLOXACIN [Concomitant]
     Active Substance: LEVOFLOXACIN
     Indication: Shunt infection
     Route: 065

REACTIONS (1)
  - Colitis microscopic [Recovering/Resolving]
